FAERS Safety Report 7073289-0 (Version None)
Quarter: 2010Q4

REPORT INFORMATION
  Report Type: 
  Country: None (occurrence: None)
  Receive Date: 20101029
  Receipt Date: 20100524
  Transmission Date: 20110411
  Serious: No
  Sender: FDA-Public Use
  Company Number: A0861031A

PATIENT
  Age: 8 Year
  Sex: Female

DRUGS (4)
  1. ADVAIR DISKUS 100/50 [Suspect]
     Indication: ASTHMA
     Dosage: 1PUFF TWICE PER DAY
     Route: 055
     Dates: start: 20100510
  2. UNSPECIFIED MEDICATION [Concomitant]
     Indication: ASTHMA
  3. NEBULIZER [Concomitant]
     Indication: ASTHMA
  4. UNSPECIFIED INHALER [Concomitant]

REACTIONS (3)
  - DIZZINESS [None]
  - HEADACHE [None]
  - NAUSEA [None]
